FAERS Safety Report 5570692-2 (Version None)
Quarter: 2007Q4

REPORT INFORMATION
  Report Type: 
  Country: None (occurrence: None)
  Receive Date: 20071221
  Receipt Date: 20071119
  Transmission Date: 20080405
  Serious: No
  Sender: FDA-Public Use
  Company Number: US-BAUSCH-2007BL004189

PATIENT
  Age: 30 Year
  Sex: Female

DRUGS (3)
  1. ALAWAY [Suspect]
     Indication: SEASONAL ALLERGY
     Route: 047
     Dates: start: 20071001, end: 20071001
  2. ALAWAY [Suspect]
     Route: 047
     Dates: start: 20071117, end: 20071119
  3. ORAL CONTRACEPTIVE NOS [Concomitant]
     Indication: CONTRACEPTION

REACTIONS (3)
  - DRUG INEFFECTIVE [None]
  - ERYTHEMA [None]
  - SWELLING FACE [None]
